FAERS Safety Report 23867331 (Version 1)
Quarter: 2024Q2

REPORT INFORMATION
  Report Type: Spontaneous
  Country: US (occurrence: US)
  Receive Date: 20240517
  Receipt Date: 20240517
  Transmission Date: 20240716
  Serious: Yes (Other)
  Sender: FDA-Public Use
  Company Number: US-AMGEN-USASP2024094592

PATIENT
  Age: 69 Year
  Sex: Male

DRUGS (4)
  1. INFLIXIMAB [Suspect]
     Active Substance: INFLIXIMAB
     Indication: Colitis ulcerative
     Dosage: 5 MILLIGRAM/KILOGRAM, Q8WK
     Route: 065
  2. AZATHIOPRINE [Concomitant]
     Active Substance: AZATHIOPRINE
     Indication: Colitis ulcerative
     Dosage: 200 MILLIGRAM, QD
     Route: 065
  3. AZATHIOPRINE [Concomitant]
     Active Substance: AZATHIOPRINE
     Dosage: 100 MILLIGRAM, QD
     Route: 065
  4. AZATHIOPRINE [Concomitant]
     Active Substance: AZATHIOPRINE
     Dosage: 200 MILLIGRAM, QD
     Route: 065

REACTIONS (2)
  - Vasculitis gastrointestinal [Recovering/Resolving]
  - Helicobacter gastritis [Recovering/Resolving]
